FAERS Safety Report 11811682 (Version 1)
Quarter: 2015Q4

REPORT INFORMATION
  Report Type: Report from Study
  Country: BE (occurrence: BE)
  Receive Date: 20151208
  Receipt Date: 20151208
  Transmission Date: 20160305
  Serious: Yes (Hospitalization)
  Sender: FDA-Public Use
  Company Number: BE-ABBVIE-15P-013-1512803-00

PATIENT
  Sex: Female

DRUGS (3)
  1. DUODOPA [Suspect]
     Active Substance: CARBIDOPA\LEVODOPA
     Indication: PARKINSON^S DISEASE
     Dosage: AM=6ML; CD=4.4ML/H FOR 16HRS; ED=3ML; ND=2.5ML/H FOR 8HRS
     Route: 050
     Dates: start: 20130527, end: 20130530
  2. DUODOPA [Suspect]
     Active Substance: CARBIDOPA\LEVODOPA
     Dosage: DOSES CONTINUOUSLY MONITORED AND ADAPTED.
     Route: 050
     Dates: start: 20130530, end: 20130906
  3. DUODOPA [Suspect]
     Active Substance: CARBIDOPA\LEVODOPA
     Dosage: AM=8ML; CD=4.9ML/H, AT 3PM CD=6ML/H FOR 16HRS; ED=6ML; ND=1.9ML/H FOR 8HRS
     Route: 050
     Dates: start: 20130906, end: 20151201

REACTIONS (2)
  - Stoma site hypergranulation [Unknown]
  - Device dislocation [Unknown]
